FAERS Safety Report 9415200 (Version 7)
Quarter: 2013Q3

REPORT INFORMATION
  Report Type: Report from Study
  Country: CZ (occurrence: CZ)
  Receive Date: 20130723
  Receipt Date: 20130926
  Transmission Date: 20140515
  Serious: Yes (Life-Threatening, Hospitalization)
  Sender: FDA-Public Use
  Company Number: CZ-009507513-1307CZE011398

PATIENT
  Age: 64 Year
  Sex: Male
  Weight: 138 kg

DRUGS (3)
  1. CASPOFUNGIN ACETATE [Suspect]
     Indication: FUNGAEMIA
     Dosage: 70 MG, QD (1 IN 1 DAY)
     Route: 042
     Dates: start: 20130712, end: 20130718
  2. PIPERACILLIN SODIUM (+) TAZOBACTAM SODIUM [Concomitant]
     Indication: FEBRILE NEUTROPENIA
     Dosage: 4.5 G, TID
     Route: 042
     Dates: start: 20130628, end: 20130714
  3. ACYCLOVIR [Concomitant]
     Indication: ORAL HERPES
     Dosage: 400 MG, AS NECESSARY
     Route: 048
     Dates: start: 20130624, end: 20130724

REACTIONS (2)
  - Aspergillus infection [Recovered/Resolved with Sequelae]
  - Pneumonia bacterial [Recovered/Resolved]
